FAERS Safety Report 24404673 (Version 1)
Quarter: 2024Q4

REPORT INFORMATION
  Report Type: Spontaneous
  Country: US (occurrence: US)
  Receive Date: 20241007
  Receipt Date: 20241007
  Transmission Date: 20250115
  Serious: No
  Sender: ROCHE
  Company Number: US-ROCHE-3518715

PATIENT
  Sex: Female
  Weight: 70.31 kg

DRUGS (4)
  1. GAZYVA [Suspect]
     Active Substance: OBINUTUZUMAB
     Indication: Nodal marginal zone B-cell lymphoma
     Route: 042
  2. RITUXAN [Suspect]
     Active Substance: RITUXIMAB
     Indication: Nodal marginal zone B-cell lymphoma
     Route: 065
     Dates: start: 2015
  3. LITHIUM [Concomitant]
     Active Substance: LITHIUM
     Indication: Bipolar disorder
  4. ABILIFY [Concomitant]
     Active Substance: ARIPIPRAZOLE
     Indication: Bipolar disorder

REACTIONS (7)
  - Upper respiratory tract infection [Not Recovered/Not Resolved]
  - Ototoxicity [Unknown]
  - Deafness unilateral [Unknown]
  - Feeling abnormal [Unknown]
  - Illness [Unknown]
  - Upper respiratory tract congestion [Unknown]
  - Rhinorrhoea [Unknown]
